FAERS Safety Report 4917368-X (Version None)
Quarter: 2006Q1

REPORT INFORMATION
  Report Type: 
  Country: None (occurrence: None)
  Receive Date: 20060221
  Receipt Date: 20060202
  Transmission Date: 20060701
  Serious: Yes (Hospitalization, Other)
  Sender: FDA-Public Use
  Company Number: US-GLAXOSMITHKLINE-A0592461A

PATIENT
  Age: 85 Year
  Sex: Female
  Weight: 82.7 kg

DRUGS (2)
  1. AVANDIA [Suspect]
     Indication: DRUG USE FOR UNKNOWN INDICATION
     Dosage: 2MG TWICE PER DAY
     Route: 048
  2. GLUCOPHAGE [Concomitant]
     Indication: DRUG USE FOR UNKNOWN INDICATION

REACTIONS (4)
  - ADVERSE EVENT [None]
  - CARDIAC FAILURE CONGESTIVE [None]
  - FLUID OVERLOAD [None]
  - OEDEMA PERIPHERAL [None]
